FAERS Safety Report 20505530 (Version 1)
Quarter: 2022Q1

REPORT INFORMATION
  Report Type: Spontaneous
  Country: DE (occurrence: DE)
  Receive Date: 20220223
  Receipt Date: 20220223
  Transmission Date: 20220423
  Serious: Yes (Hospitalization, Other)
  Sender: FDA-Public Use
  Company Number: DE-SA-2022SA053529

PATIENT
  Age: 85 Year
  Sex: Female
  Weight: 88 kg

DRUGS (2)
  1. ENOXAPARIN SODIUM [Suspect]
     Active Substance: ENOXAPARIN SODIUM
     Indication: Atrial fibrillation
     Dosage: 80 MG/0.8ML
  2. ENOXAPARIN SODIUM [Suspect]
     Active Substance: ENOXAPARIN SODIUM
     Indication: Chronic kidney disease

REACTIONS (9)
  - Hypovolaemic shock [Unknown]
  - Subcutaneous haematoma [Recovering/Resolving]
  - Peripheral swelling [Recovering/Resolving]
  - Haemorrhage [Recovering/Resolving]
  - Pallor [Recovering/Resolving]
  - Hypotension [Recovering/Resolving]
  - Skin necrosis [Unknown]
  - Blister [Unknown]
  - Skin infection [Unknown]
